FAERS Safety Report 8134770-6 (Version None)
Quarter: 2012Q1

REPORT INFORMATION
  Report Type: 
  Country: None (occurrence: None)
  Receive Date: 20120214
  Receipt Date: 20120202
  Transmission Date: 20120608
  Serious: Yes (Other)
  Sender: FDA-Public Use
  Company Number: US-SANOFI-AVENTIS-2012SA007149

PATIENT
  Age: 71 Year
  Sex: Female

DRUGS (2)
  1. LANTUS [Suspect]
     Route: 058
     Dates: start: 20120101
  2. SOLOSTAR [Suspect]
     Dates: start: 20120101

REACTIONS (4)
  - DEAFNESS [None]
  - BLINDNESS [None]
  - TREMOR [None]
  - BLISTER [None]
